FAERS Safety Report 16026557 (Version 1)
Quarter: 2019Q1

REPORT INFORMATION
  Report Type: Spontaneous
  Country: None (occurrence: TH)
  Receive Date: 20190302
  Receipt Date: 20190302
  Transmission Date: 20190418
  Serious: Yes (Other)
  Sender: FDA-Public Use
  Company Number: TH-POPULATION COUNCIL, INC.-2063465

PATIENT
  Age: 44 Year
  Sex: Female
  Weight: 62.15 kg

DRUGS (1)
  1. JADELLE [Suspect]
     Active Substance: LEVONORGESTREL
     Route: 059
     Dates: start: 20150921

REACTIONS (2)
  - Drug ineffective [None]
  - Pregnancy with implant contraceptive [None]
